FAERS Safety Report 16474431 (Version 1)
Quarter: 2019Q2

REPORT INFORMATION
  Report Type: Spontaneous
  Country: US (occurrence: US)
  Receive Date: 20190625
  Receipt Date: 20190625
  Transmission Date: 20190711
  Serious: Yes (Other)
  Sender: FDA-Public Use
  Company Number: US-ASTRAZENECA-2019SE90724

PATIENT
  Age: 752 Month
  Sex: Female

DRUGS (2)
  1. METFORMIN [Concomitant]
     Active Substance: METFORMIN HYDROCHLORIDE
  2. BYDUREON [Suspect]
     Active Substance: EXENATIDE
     Route: 065

REACTIONS (6)
  - Pneumothorax [Unknown]
  - General physical health deterioration [Unknown]
  - Fall [Unknown]
  - Therapy cessation [Unknown]
  - Small cell lung cancer [Unknown]
  - Femur fracture [Unknown]

NARRATIVE: CASE EVENT DATE: 201807
